FAERS Safety Report 13445022 (Version 1)
Quarter: 2017Q2

REPORT INFORMATION
  Report Type: Spontaneous
  Country: SE (occurrence: SE)
  Receive Date: 20170414
  Receipt Date: 20170414
  Transmission Date: 20170830
  Serious: Yes (Other)
  Sender: FDA-Public Use
  Company Number: SE-TEVA-757890ISR

PATIENT
  Age: 42 Year
  Sex: Female

DRUGS (7)
  1. CETIRIZINE [Interacting]
     Active Substance: CETIRIZINE HYDROCHLORIDE
  2. RINEXIN [Concomitant]
     Active Substance: PHENYLPROPANOLAMINE
  3. LERGIGAN COMP [Concomitant]
  4. IMIGRAN [Concomitant]
     Active Substance: SUMATRIPTAN SUCCINATE
  5. ZYBAN [Concomitant]
     Active Substance: BUPROPION HYDROCHLORIDE
  6. SUMATRIPTAN. [Suspect]
     Active Substance: SUMATRIPTAN
  7. TAVEGYL [Concomitant]
     Active Substance: CLEMASTINE FUMARATE

REACTIONS (9)
  - Muscle spasms [Recovered/Resolved]
  - Dizziness [Recovered/Resolved]
  - Headache [Recovered/Resolved]
  - Palpitations [Recovered/Resolved]
  - Anxiety [Recovered/Resolved]
  - Feeling of body temperature change [Recovered/Resolved]
  - Nausea [Recovered/Resolved]
  - Chills [Recovered/Resolved]
  - Drug interaction [Recovered/Resolved]
